FAERS Safety Report 25276023 (Version 2)
Quarter: 2025Q2

REPORT INFORMATION
  Report Type: Spontaneous
  Country: US (occurrence: US)
  Receive Date: 20250507
  Receipt Date: 20250530
  Transmission Date: 20250717
  Serious: Yes (Other)
  Sender: ROCHE
  Company Number: US-ROCHE-10000272490

PATIENT
  Age: 71 Year
  Sex: Male
  Weight: 108 kg

DRUGS (2)
  1. VABYSMO [Suspect]
     Active Substance: FARICIMAB-SVOA
     Indication: Product used for unknown indication
     Route: 065
     Dates: start: 20240123, end: 20250422
  2. BETADINE [Concomitant]
     Active Substance: POVIDONE-IODINE

REACTIONS (4)
  - Vitritis [Not Recovered/Not Resolved]
  - Retinitis [Not Recovered/Not Resolved]
  - Uveitis [Not Recovered/Not Resolved]
  - Retinal occlusive vasculitis [Not Recovered/Not Resolved]

NARRATIVE: CASE EVENT DATE: 20250425
